FAERS Safety Report 19419418 (Version 1)
Quarter: 2021Q2

REPORT INFORMATION
  Report Type: Spontaneous
  Country: NL (occurrence: FR)
  Receive Date: 20210615
  Receipt Date: 20210615
  Transmission Date: 20210717
  Serious: Yes (Hospitalization)
  Sender: FDA-Public Use
  Company Number: FR-FRESENIUS KABI-FK202105861

PATIENT
  Age: 51 Year
  Sex: Male
  Weight: 67 kg

DRUGS (11)
  1. ERTAPENEM. [Suspect]
     Active Substance: ERTAPENEM SODIUM
     Indication: ANTIBIOTIC PROPHYLAXIS
     Route: 042
     Dates: start: 20210331, end: 20210331
  2. HEPARIN [Suspect]
     Active Substance: HEPARIN SODIUM
     Indication: THROMBOSIS PROPHYLAXIS
     Route: 058
     Dates: start: 20210316, end: 20210414
  3. CIPROFLOXACIN (MANUFACTURER UNKNOWN) [Suspect]
     Active Substance: CIPROFLOXACIN
     Indication: ANTIBIOTIC PROPHYLAXIS
     Route: 042
     Dates: start: 20210402, end: 20210406
  4. INSULIN PORCINE PROTAMINE ZINC [Suspect]
     Active Substance: INSULIN PORK\INSULIN PURIFIED PORK
     Indication: INSULIN THERAPY
     Dosage: 100 UI/ML DEPENDING ON BLOOD SUGAR
     Route: 058
     Dates: start: 20210406, end: 20210409
  5. IMIPENEM [Suspect]
     Active Substance: IMIPENEM
     Indication: ANTIBIOTIC PROPHYLAXIS
     Route: 042
     Dates: start: 20210420, end: 20210421
  6. LANSOPRAZOLE. [Suspect]
     Active Substance: LANSOPRAZOLE
     Indication: PROPHYLAXIS AGAINST GASTROINTESTINAL ULCER
     Route: 048
     Dates: start: 20210403
  7. PROPOFOL (MANUFACTURER UNKNOWN) [Suspect]
     Active Substance: PROPOFOL
     Indication: SEDATION
     Dosage: 0.20 ML/HOUR
     Route: 042
     Dates: start: 20210401, end: 20210521
  8. IOMEPROL [Suspect]
     Active Substance: IOMEPROL
     Indication: COMPUTERISED TOMOGRAM
     Dosage: UNIQUE DOSE
     Route: 042
     Dates: start: 20210420, end: 20210420
  9. AMOXICILLIN. [Suspect]
     Active Substance: AMOXICILLIN
     Indication: ANTIBIOTIC PROPHYLAXIS
     Route: 065
     Dates: start: 20210415, end: 20210422
  10. SUFENTANIL [Suspect]
     Active Substance: SUFENTANIL
     Indication: SEDATION
     Dosage: 0.5 ML / HOUR
     Route: 042
     Dates: start: 20210401
  11. MEROPENEM (MANUFACTURER UNKNOWN) [Suspect]
     Active Substance: MEROPENEM
     Indication: ANTIBIOTIC PROPHYLAXIS
     Route: 042
     Dates: start: 20210401, end: 20210402

REACTIONS (2)
  - Rash morbilliform [Recovering/Resolving]
  - Drug reaction with eosinophilia and systemic symptoms [Recovering/Resolving]

NARRATIVE: CASE EVENT DATE: 20210406
